FAERS Safety Report 19943194 (Version 1)
Quarter: 2021Q4

REPORT INFORMATION
  Report Type: Spontaneous
  Country: US (occurrence: US)
  Receive Date: 20211008
  Receipt Date: 20211008
  Transmission Date: 20220303
  Serious: Yes (Hospitalization)
  Sender: FDA-Public Use
  Company Number: None

PATIENT
  Age: 45 Year
  Sex: Female
  Weight: 90 kg

DRUGS (1)
  1. SAXENDA [Suspect]
     Active Substance: LIRAGLUTIDE
     Indication: Weight decreased
     Dosage: ?          QUANTITY:1 INJECTION(S);
     Route: 058
     Dates: start: 20210401, end: 20210806

REACTIONS (3)
  - Malnutrition [None]
  - Tibia fracture [None]
  - Fibula fracture [None]

NARRATIVE: CASE EVENT DATE: 20210806
